FAERS Safety Report 11198637 (Version 2)
Quarter: 2015Q3

REPORT INFORMATION
  Report Type: Report from Study
  Country: PL (occurrence: PL)
  Receive Date: 20150618
  Receipt Date: 20150714
  Transmission Date: 20151125
  Serious: Yes (Death, Life-Threatening, Hospitalization, Other)
  Sender: FDA-Public Use
  Company Number: PL-ASTRAZENECA-2015SE05963

PATIENT
  Age: 26087 Day
  Sex: Female

DRUGS (15)
  1. ASA [Suspect]
     Active Substance: ASPIRIN
     Indication: THROMBOSIS PROPHYLAXIS
     Dosage: NON-AZ PRODUCT
     Route: 048
     Dates: start: 2000
  2. VALSARTAN. [Concomitant]
     Active Substance: VALSARTAN
     Indication: MYOCARDIAL ISCHAEMIA
     Route: 048
     Dates: start: 20141103
  3. HUMAN INSULIN BIPHASIC [Concomitant]
     Indication: TYPE 2 DIABETES MELLITUS
     Route: 058
     Dates: start: 2010
  4. HUMAN INSULIN BIPHASIC [Concomitant]
     Indication: TYPE 2 DIABETES MELLITUS
     Route: 058
  5. NEBIVOLOL. [Concomitant]
     Active Substance: NEBIVOLOL
     Indication: MYOCARDIAL ISCHAEMIA
     Route: 048
     Dates: start: 20141103
  6. OMEPRAZOLE. [Concomitant]
     Active Substance: OMEPRAZOLE
     Indication: ANTIPLATELET THERAPY
     Route: 048
     Dates: start: 20141103
  7. DILTIAZEM [Concomitant]
     Active Substance: DILTIAZEM
  8. PANTOPRAZOLE SODIUM. [Concomitant]
     Active Substance: PANTOPRAZOLE SODIUM
  9. CLOPIDOGREL [Suspect]
     Active Substance: CLOPIDOGREL BISULFATE
     Indication: THROMBOSIS PROPHYLAXIS
     Route: 048
     Dates: start: 20141216
  10. TORASEMIDE [Concomitant]
     Active Substance: TORSEMIDE
     Route: 048
     Dates: start: 20141103
  11. ENOXAPARIN [Concomitant]
     Active Substance: ENOXAPARIN
  12. TICAGRELOR [Suspect]
     Active Substance: TICAGRELOR
     Indication: THROMBOSIS PROPHYLAXIS
     Route: 048
     Dates: start: 20141104, end: 20141216
  13. ATORVASTATIN [Concomitant]
     Active Substance: ATORVASTATIN
     Indication: DYSLIPIDAEMIA
     Route: 048
     Dates: start: 20141103
  14. AMLODYPINUM [Concomitant]
     Route: 048
     Dates: start: 20141103
  15. METFORMIN [Concomitant]
     Active Substance: METFORMIN HYDROCHLORIDE
     Indication: TYPE 2 DIABETES MELLITUS
     Route: 048
     Dates: start: 2010

REACTIONS (4)
  - Cardiac failure congestive [Fatal]
  - Cardiogenic shock [Fatal]
  - Pulmonary hypertension [Fatal]
  - Dilatation ventricular [Fatal]

NARRATIVE: CASE EVENT DATE: 20141223
